FAERS Safety Report 11112679 (Version 1)
Quarter: 2015Q2

REPORT INFORMATION
  Report Type: Spontaneous
  Country: US (occurrence: None)
  Receive Date: 20150504
  Receipt Date: 20150504
  Transmission Date: 20150821
  Serious: Yes (Other)
  Sender: FDA-Public Use
  Company Number: 1442678

PATIENT
  Age: 66 Year
  Sex: Female

DRUGS (2)
  1. EYELEAR INTEROCULAR INJECTION (UNK INGREDIENTS) (OPHTHALMIC PREPARATIONS) [Concomitant]
  2. AVASTIN [Suspect]
     Active Substance: BEVACIZUMAB
     Indication: PRODUCT USED FOR UNKNOWN INDICATION
     Dates: start: 201310

REACTIONS (2)
  - Off label use [None]
  - Ocular hyperaemia [None]
